FAERS Safety Report 16246350 (Version 1)
Quarter: 2019Q2

REPORT INFORMATION
  Report Type: Spontaneous
  Country: ES (occurrence: ES)
  Receive Date: 20190426
  Receipt Date: 20190426
  Transmission Date: 20190711
  Serious: Yes (Hospitalization)
  Sender: FDA-Public Use
  Company Number: ES-STRIDES ARCOLAB LIMITED-2019SP003505

PATIENT
  Age: 78 Year
  Sex: Male

DRUGS (11)
  1. OMEPRAZOLE. [Concomitant]
     Active Substance: OMEPRAZOLE
     Indication: PRODUCT USED FOR UNKNOWN INDICATION
     Dosage: 20 MG, QD
     Route: 065
  2. ATORVASTATIN [Interacting]
     Active Substance: ATORVASTATIN
     Indication: PRODUCT USED FOR UNKNOWN INDICATION
     Dosage: 40 MG, QD
     Route: 065
  3. COLCHICINE. [Interacting]
     Active Substance: COLCHICINE
     Indication: GOUT
     Dosage: 1 MG/DAY
     Route: 065
  4. COLCHICINE. [Interacting]
     Active Substance: COLCHICINE
     Dosage: 4 MG/DAY
     Route: 065
  5. ERTAPENEM. [Concomitant]
     Active Substance: ERTAPENEM SODIUM
     Indication: ORCHITIS
     Dosage: UNK
     Route: 042
  6. DUTASTERIDE/TAMSULOSINEHYDROCHLORIDE FISHER [Concomitant]
     Active Substance: DUTASTERIDE\TAMSULOSIN HYDROCHLORIDE
     Indication: PRODUCT USED FOR UNKNOWN INDICATION
     Dosage: 0.5/0.4 QD
     Route: 065
  7. ALLOPURINOL. [Concomitant]
     Active Substance: ALLOPURINOL
     Indication: PRODUCT USED FOR UNKNOWN INDICATION
     Dosage: 300 MG, QD
     Route: 065
  8. PARACETAMOL [Concomitant]
     Active Substance: ACETAMINOPHEN
     Indication: PRODUCT USED FOR UNKNOWN INDICATION
     Dosage: 650 MG, TID
     Route: 065
  9. FUROSEMIDE. [Suspect]
     Active Substance: FUROSEMIDE
     Indication: PRODUCT USED FOR UNKNOWN INDICATION
     Dosage: 40 MG, QD
     Route: 065
  10. VERAPAMIL [Concomitant]
     Active Substance: VERAPAMIL HYDROCHLORIDE
     Indication: PRODUCT USED FOR UNKNOWN INDICATION
     Dosage: 240 MG, QD
     Route: 065
  11. CLARITHROMYCIN. [Suspect]
     Active Substance: CLARITHROMYCIN
     Indication: ORCHITIS
     Dosage: UNK
     Route: 048

REACTIONS (7)
  - Myoglobinuria [Recovered/Resolved]
  - Myalgia [Recovered/Resolved]
  - Neuromyopathy [Recovered/Resolved]
  - Muscular weakness [Recovered/Resolved]
  - Areflexia [Recovered/Resolved]
  - Gait inability [Recovered/Resolved]
  - Drug interaction [Recovered/Resolved]
